FAERS Safety Report 12553642 (Version 1)
Quarter: 2016Q3

REPORT INFORMATION
  Report Type: Spontaneous
  Country: US (occurrence: US)
  Receive Date: 20160713
  Receipt Date: 20160713
  Transmission Date: 20161109
  Serious: Yes (Hospitalization, Other)
  Sender: FDA-Public Use
  Company Number: US-IPCA LABORATORIES LIMITED-IPC201607-000609

PATIENT
  Age: 62 Year
  Sex: Male
  Weight: 72.57 kg

DRUGS (7)
  1. LIPITOR [Suspect]
     Active Substance: ATORVASTATIN CALCIUM
     Indication: THROMBOSIS
     Dates: start: 201005, end: 20160506
  2. LIPITOR [Suspect]
     Active Substance: ATORVASTATIN CALCIUM
  3. METOPROLOL TARTRATE. [Suspect]
     Active Substance: METOPROLOL TARTRATE
     Indication: HYPERTENSION
     Route: 048
  4. METOPROLOL TARTRATE. [Suspect]
     Active Substance: METOPROLOL TARTRATE
     Indication: CARDIAC DISORDER
  5. PLAVIX [Concomitant]
     Active Substance: CLOPIDOGREL BISULFATE
     Indication: THROMBOSIS
  6. LIPITOR [Suspect]
     Active Substance: ATORVASTATIN CALCIUM
  7. HYDROCODONE [Concomitant]
     Active Substance: HYDROCODONE
     Indication: MYALGIA

REACTIONS (7)
  - Impaired work ability [Not Recovered/Not Resolved]
  - Abasia [Not Recovered/Not Resolved]
  - Gastrointestinal haemorrhage [Recovered/Resolved]
  - Impaired driving ability [Not Recovered/Not Resolved]
  - Paraplegia [Not Recovered/Not Resolved]
  - Blood cholesterol decreased [Not Recovered/Not Resolved]
  - Dysstasia [Not Recovered/Not Resolved]

NARRATIVE: CASE EVENT DATE: 201410
